FAERS Safety Report 8027237-7 (Version None)
Quarter: 2012Q1

REPORT INFORMATION
  Report Type: 
  Country: None (occurrence: None)
  Receive Date: 20120106
  Receipt Date: 20120103
  Transmission Date: 20120608
  Serious: Yes (Hospitalization)
  Sender: FDA-Public Use
  Company Number: FR-SP-2011-05615

PATIENT
  Sex: Male

DRUGS (9)
  1. IMMUCYST [Suspect]
     Indication: BLADDER CANCER
     Route: 043
     Dates: start: 20110616, end: 20110616
  2. CLONAZEPAM [Concomitant]
  3. EZETIMIBE [Concomitant]
  4. KETOPROFEN [Concomitant]
  5. NEXIUM [Concomitant]
  6. JOSIR (TAMSULOSINE) [Concomitant]
  7. OFLOCET (OFLOXACINE) [Concomitant]
  8. DANTRIUM (DANTROLENE) [Concomitant]
  9. BACLOFEN [Concomitant]

REACTIONS (24)
  - BOVINE TUBERCULOSIS [None]
  - PYREXIA [None]
  - ORAL HERPES [None]
  - GRANULOMATOUS LIVER DISEASE [None]
  - HEPATIC NECROSIS [None]
  - EYE DISORDER [None]
  - INFLAMMATION [None]
  - HISTIOCYTOSIS HAEMATOPHAGIC [None]
  - CLOSTRIDIUM DIFFICILE COLITIS [None]
  - MOBILITY DECREASED [None]
  - BLOOD TRIGLYCERIDES INCREASED [None]
  - LUNG DISORDER [None]
  - HEPATIC CYST [None]
  - BLINDNESS TRANSIENT [None]
  - UHTHOFF'S PHENOMENON [None]
  - COLITIS [None]
  - ASTHENIA [None]
  - PYRAMIDAL TRACT SYNDROME [None]
  - RENAL CYST [None]
  - LIVER INJURY [None]
  - PANCYTOPENIA [None]
  - DRUG INEFFECTIVE [None]
  - SERUM FERRITIN INCREASED [None]
  - HYPONATRAEMIA [None]
